FAERS Safety Report 4358191-7 (Version None)
Quarter: 2004Q2

REPORT INFORMATION
  Report Type: 
  Country: None (occurrence: None)
  Receive Date: 20040513
  Receipt Date: 20040513
  Transmission Date: 20050107
  Serious: Yes (Life-Threatening, Hospitalization)
  Sender: FDA-Public Use
  Company Number: None

PATIENT
  Age: 61 Year
  Sex: Female
  Weight: 114 kg

DRUGS (1)
  1. CELECOXIB PFIZER [Suspect]
     Indication: ARTHRITIS

REACTIONS (6)
  - DIZZINESS [None]
  - FAECES DISCOLOURED [None]
  - HAEMATEMESIS [None]
  - HAEMORRHAGE [None]
  - MELAENA [None]
  - PALLOR [None]
